FAERS Safety Report 10353875 (Version 1)
Quarter: 2014Q3

REPORT INFORMATION
  Report Type: Spontaneous
  Country: US (occurrence: None)
  Receive Date: 20140729
  Receipt Date: 20140729
  Transmission Date: 20150326
  Serious: Yes (Hospitalization)
  Sender: FDA-Public Use
  Company Number: None

PATIENT
  Age: 83 Year
  Sex: Female

DRUGS (6)
  1. FOLIC ACID. [Concomitant]
     Active Substance: FOLIC ACID
  2. SINEMET [Concomitant]
     Active Substance: CARBIDOPA\LEVODOPA
  3. PRILOSEC [Concomitant]
     Active Substance: OMEPRAZOLE MAGNESIUM
  4. HYDROCODONE [Concomitant]
     Active Substance: HYDROCODONE
  5. IMBRUVICA [Suspect]
     Active Substance: IBRUTINIB
     Indication: CHRONIC LYMPHOCYTIC LEUKAEMIA
     Dosage: 420 MG ONCE DAILY MOUTH
     Route: 048
     Dates: start: 20140703
  6. BENADRYL [Concomitant]
     Active Substance: DIPHENHYDRAMINE HYDROCHLORIDE

REACTIONS (3)
  - Swollen tongue [None]
  - Lip swelling [None]
  - Pruritus generalised [None]

NARRATIVE: CASE EVENT DATE: 20140726
